FAERS Safety Report 14595487 (Version 1)
Quarter: 2018Q1

REPORT INFORMATION
  Report Type: Other
  Country: CA (occurrence: US)
  Receive Date: 20180302
  Receipt Date: 20180302
  Transmission Date: 20180509
  Serious: No
  Sender: FDA-Public Use
  Company Number: US-APOLLO HEALTH AND BEAUTY CARE INC.-2042896

PATIENT
  Sex: Female

DRUGS (1)
  1. EQUATE CLEAR COMPLEXION FACIAL CLEANSER [Suspect]
     Active Substance: BENZOYL PEROXIDE

REACTIONS (1)
  - Erythema [Unknown]

NARRATIVE: CASE EVENT DATE: 20171101
